FAERS Safety Report 8516539-3 (Version None)
Quarter: 2012Q3

REPORT INFORMATION
  Report Type: 
  Country: None (occurrence: None)
  Receive Date: 20120711
  Receipt Date: 20120711
  Transmission Date: 20120928
  Serious: Yes (Hospitalization)
  Sender: FDA-Public Use
  Company Number: None

PATIENT
  Age: 58 Year
  Sex: Male
  Weight: 97.9 kg

DRUGS (9)
  1. ALOMTUZUMAB [Suspect]
     Indication: CHRONIC LYMPHOCYTIC LEUKAEMIA
     Dosage: 30MG, MWF X 12 WKS, SC
     Route: 058
     Dates: start: 20120402, end: 20120622
  2. BACTRIM DS [Concomitant]
  3. POSACONAZOLE [Concomitant]
  4. ACYCLOVIR [Concomitant]
  5. ZOFRAN [Concomitant]
  6. AUGMENTIN '500' [Concomitant]
  7. ATIVAN [Concomitant]
  8. FRAGMIN [Concomitant]
  9. OFATUMUMAB [Suspect]
     Indication: CHRONIC LYMPHOCYTIC LEUKAEMIA
     Dosage: 1000MG, Q28D, IV
     Route: 042
     Dates: start: 20120402, end: 20120529

REACTIONS (7)
  - LUNG CONSOLIDATION [None]
  - INSOMNIA [None]
  - PULMONARY CONGESTION [None]
  - DYSPNOEA [None]
  - COUGH [None]
  - MUSCULOSKELETAL CHEST PAIN [None]
  - FATIGUE [None]
